FAERS Safety Report 5875754-8 (Version None)
Quarter: 2008Q3

REPORT INFORMATION
  Report Type: 
  Country: None (occurrence: None)
  Receive Date: 20080905
  Receipt Date: 20080829
  Transmission Date: 20090109
  Serious: Yes (Hospitalization)
  Sender: FDA-Public Use
  Company Number: GXKR2008IT08227

PATIENT
  Age: 83 Year
  Sex: Female

DRUGS (1)
  1. KETOPROFEN [Suspect]

REACTIONS (1)
  - STEVENS-JOHNSON SYNDROME [None]
